FAERS Safety Report 5381997-2 (Version None)
Quarter: 2007Q3

REPORT INFORMATION
  Report Type: 
  Country: None (occurrence: None)
  Receive Date: 20070709
  Receipt Date: 20070627
  Transmission Date: 20080115
  Serious: Yes (Other)
  Sender: FDA-Public Use
  Company Number: B0477150A

PATIENT
  Age: 79 Year
  Sex: Male

DRUGS (3)
  1. AVANDIA [Suspect]
     Indication: TYPE 2 DIABETES MELLITUS
     Route: 048
  2. BIGUANIDE [Suspect]
     Indication: TYPE 2 DIABETES MELLITUS
     Route: 065
  3. DIURETIC [Concomitant]
     Indication: HYPERTENSION
     Route: 065

REACTIONS (1)
  - RIGHT VENTRICULAR FAILURE [None]
